FAERS Safety Report 13581047 (Version 1)
Quarter: 2017Q2

REPORT INFORMATION
  Report Type: Spontaneous
  Country: US (occurrence: US)
  Receive Date: 20170525
  Receipt Date: 20170525
  Transmission Date: 20170830
  Serious: Yes (Other)
  Sender: FDA-Public Use
  Company Number: None

PATIENT
  Age: 4 Year
  Sex: Female
  Weight: 18.45 kg

DRUGS (4)
  1. MIRALAX [Suspect]
     Active Substance: POLYETHYLENE GLYCOL 3350
     Indication: CONSTIPATION
  2. MAGNESIUM [Concomitant]
     Active Substance: MAGNESIUM
  3. TENEX [Concomitant]
     Active Substance: GUANFACINE HYDROCHLORIDE
  4. ZARONTIN [Concomitant]
     Active Substance: ETHOSUXIMIDE

REACTIONS (2)
  - Tic [None]
  - Epilepsy [None]

NARRATIVE: CASE EVENT DATE: 20170301
